FAERS Safety Report 25956539 (Version 1)
Quarter: 2025Q4

REPORT INFORMATION
  Report Type: Spontaneous
  Country: TW (occurrence: TW)
  Receive Date: 20251024
  Receipt Date: 20251024
  Transmission Date: 20260117
  Serious: Yes (Hospitalization)
  Sender: JOHNSON AND JOHNSON
  Company Number: TW-JNJFOC-20251017064

PATIENT
  Age: 75 Year
  Sex: Male
  Weight: 80 kg

DRUGS (4)
  1. ERLEADA [Suspect]
     Active Substance: APALUTAMIDE
     Indication: Prostate cancer
     Route: 048
     Dates: start: 20250630, end: 20250829
  2. ERLEADA [Suspect]
     Active Substance: APALUTAMIDE
     Route: 048
     Dates: start: 20250630, end: 20250829
  3. ERLEADA [Suspect]
     Active Substance: APALUTAMIDE
     Route: 048
  4. DEGARELIX [Concomitant]
     Active Substance: DEGARELIX
     Indication: Product used for unknown indication
     Route: 058

REACTIONS (8)
  - Rash maculo-papular [Recovering/Resolving]
  - Pruritus [Recovering/Resolving]
  - Candida infection [Unknown]
  - Urinary tract infection [Unknown]
  - Tumour associated fever [Unknown]
  - Pancreatitis acute [Unknown]
  - Drug reaction with eosinophilia and systemic symptoms [Unknown]
  - Off label use [Unknown]

NARRATIVE: CASE EVENT DATE: 20250825
